FAERS Safety Report 9474215 (Version 2)
Quarter: 2013Q3

REPORT INFORMATION
  Report Type: Spontaneous
  Country: US (occurrence: US)
  Receive Date: 20130823
  Receipt Date: 20130904
  Transmission Date: 20140515
  Serious: No
  Sender: FDA-Public Use
  Company Number: US-JNJFOC-20130807214

PATIENT
  Age: 59 Year
  Sex: Female
  Weight: 72.58 kg

DRUGS (2)
  1. DURAGESIC [Suspect]
     Indication: MALAISE
     Dosage: NDC: 50458094-05
     Route: 062
  2. DURAGESIC [Suspect]
     Indication: PAIN
     Dosage: NDC: 50458094-05
     Route: 062

REACTIONS (7)
  - Wrong technique in drug usage process [Unknown]
  - Product quality issue [Unknown]
  - Product quality issue [Unknown]
  - Wrong technique in drug usage process [Unknown]
  - Product quality issue [Unknown]
  - Wrong technique in drug usage process [Recovered/Resolved]
  - Drug ineffective [Not Recovered/Not Resolved]
